FAERS Safety Report 22250577 (Version 1)
Quarter: 2023Q2

REPORT INFORMATION
  Report Type: Spontaneous
  Country: US (occurrence: US)
  Receive Date: 20230425
  Receipt Date: 20230425
  Transmission Date: 20230721
  Serious: Yes (Other)
  Sender: FDA-Public Use
  Company Number: US-ABBVIE-4740533

PATIENT
  Sex: Male
  Weight: 117 kg

DRUGS (14)
  1. LUPRON [Suspect]
     Active Substance: LEUPROLIDE ACETATE
     Indication: Product used for unknown indication
     Route: 065
  2. Neuriva brain performance (Coffee arabica, Phosphatidyl serine) [Concomitant]
     Indication: Product used for unknown indication
  3. ZOLPIDEM TARTRATE [Concomitant]
     Active Substance: ZOLPIDEM TARTRATE
     Indication: Product used for unknown indication
  4. Cetirizine HCL (Cetirizine HCL) [Concomitant]
     Indication: Product used for unknown indication
  5. Calcium 600 plus vitamin d3 (Calcium, Colecalciferol) [Concomitant]
     Indication: Product used for unknown indication
  6. METFORMIN [Concomitant]
     Active Substance: METFORMIN HYDROCHLORIDE
     Indication: Product used for unknown indication
  7. Amlodipine besylate (Amlodipine besylate) [Concomitant]
     Indication: Product used for unknown indication
  8. Vitamin d3 (Vitamin d3) [Concomitant]
     Indication: Product used for unknown indication
  9. TAMSULOSIN [Concomitant]
     Active Substance: TAMSULOSIN
     Indication: Product used for unknown indication
  10. ENZALUTAMIDE [Suspect]
     Active Substance: ENZALUTAMIDE
     Indication: Prostate cancer
     Route: 048
  11. ENZALUTAMIDE [Suspect]
     Active Substance: ENZALUTAMIDE
     Indication: Prostate cancer
     Route: 048
     Dates: start: 20221116
  12. Aspirin EC (Acetylsalicylic acid) [Concomitant]
     Indication: Product used for unknown indication
  13. Ciclopirox (Ciclopirox) [Concomitant]
     Indication: Product used for unknown indication
  14. LEXAPRO [Concomitant]
     Active Substance: ESCITALOPRAM OXALATE
     Indication: Product used for unknown indication

REACTIONS (5)
  - Acute kidney injury [Unknown]
  - Insomnia [Recovered/Resolved]
  - Restlessness [Recovered/Resolved]
  - Distractibility [Not Recovered/Not Resolved]
  - Hot flush [Recovered/Resolved]
